FAERS Safety Report 7053573-7 (Version None)
Quarter: 2010Q4

REPORT INFORMATION
  Report Type: 
  Country: None (occurrence: None)
  Receive Date: 20101020
  Receipt Date: 20101007
  Transmission Date: 20110411
  Serious: Yes (Hospitalization, Other)
  Sender: FDA-Public Use
  Company Number: FR-ROCHE-693249

PATIENT
  Sex: Female
  Weight: 65 kg

DRUGS (18)
  1. MYCOPHENOLATE MOFETIL [Suspect]
     Route: 065
     Dates: start: 20100207, end: 20100315
  2. MYCOPHENOLATE MOFETIL [Suspect]
     Route: 065
     Dates: start: 20100316
  3. PROGRAF [Suspect]
     Indication: PRODUCT USED FOR UNKNOWN INDICATION
     Route: 065
     Dates: start: 20100210, end: 20100219
  4. PROGRAF [Suspect]
     Route: 065
     Dates: start: 20100220
  5. PROGRAF [Suspect]
     Route: 065
  6. CORTANCYL [Suspect]
     Indication: PRODUCT USED FOR UNKNOWN INDICATION
     Dosage: 35 MG FOLLOWED BY 17.5 MG
     Route: 065
     Dates: start: 20100208, end: 20100218
  7. CORTANCYL [Suspect]
     Route: 065
  8. SIMULECT [Suspect]
     Indication: PRODUCT USED FOR UNKNOWN INDICATION
     Route: 065
     Dates: start: 20100207, end: 20100207
  9. SIMULECT [Suspect]
     Route: 065
     Dates: start: 20100211, end: 20100211
  10. AMLODIPINE [Concomitant]
  11. ARANESP [Concomitant]
  12. BACTRIM [Concomitant]
  13. TAHOR [Concomitant]
  14. TARDYFERON [Concomitant]
  15. LEDERFOLINE [Concomitant]
  16. LANTUS [Concomitant]
  17. NOVORAPID [Concomitant]
     Dosage: DRUG REPORTED AS NOVORPID
  18. MIMPARA [Concomitant]

REACTIONS (9)
  - ANASTOMOTIC COMPLICATION [None]
  - COMPLICATIONS OF TRANSPLANTED KIDNEY [None]
  - ESCHERICHIA URINARY TRACT INFECTION [None]
  - KIDNEY TRANSPLANT REJECTION [None]
  - NECROSIS [None]
  - PYELOCALIECTASIS [None]
  - PYELONEPHRITIS [None]
  - REFLUX NEPHROPATHY [None]
  - TRANSPLANT REJECTION [None]
